FAERS Safety Report 14525901 (Version 2)
Quarter: 2018Q1

REPORT INFORMATION
  Report Type: Spontaneous
  Country: PL (occurrence: PL)
  Receive Date: 20180213
  Receipt Date: 20180227
  Transmission Date: 20180509
  Serious: Yes (Other)
  Sender: FDA-Public Use
  Company Number: PL-INCYTE CORPORATION-2018IN001198

PATIENT

DRUGS (4)
  1. JAKAVI [Suspect]
     Active Substance: RUXOLITINIB
     Indication: PRIMARY MYELOFIBROSIS
     Dosage: 2 DF, QD (10 MG)
     Route: 065
     Dates: start: 201306
  2. JAKAVI [Suspect]
     Active Substance: RUXOLITINIB
     Dosage: 2 DF, QD (5 MG)
     Route: 065
     Dates: start: 201612, end: 201701
  3. JAKAVI [Suspect]
     Active Substance: RUXOLITINIB
     Dosage: 2 DF, QD (5 MG)
     Route: 048
     Dates: start: 201705
  4. JAKAVI [Suspect]
     Active Substance: RUXOLITINIB
     Dosage: 2 DF, QD (15 MG)
     Route: 048
     Dates: start: 201710, end: 201712

REACTIONS (13)
  - Hypogammaglobulinaemia [Unknown]
  - Primary myelofibrosis [Unknown]
  - Pancytopenia [Unknown]
  - Pneumonia [Unknown]
  - Febrile neutropenia [Unknown]
  - Cachexia [Unknown]
  - Oral herpes [Unknown]
  - Pyrexia [Unknown]
  - Bronchitis [Unknown]
  - General physical health deterioration [Unknown]
  - Splenomegaly [Unknown]
  - Influenza [Unknown]
  - Candida pneumonia [Unknown]

NARRATIVE: CASE EVENT DATE: 201612
